FAERS Safety Report 9602035 (Version 1)
Quarter: 2013Q4

REPORT INFORMATION
  Report Type: Report from Study
  Country: MX (occurrence: MX)
  Receive Date: 20131007
  Receipt Date: 20131007
  Transmission Date: 20140711
  Serious: Yes (Other)
  Sender: FDA-Public Use
  Company Number: PHHY2013MX109323

PATIENT
  Age: 50 Year
  Sex: Female

DRUGS (6)
  1. CO-DIOVAN [Suspect]
     Indication: HYPERTENSION
     Dosage: 1 DF (160MG VALS + 12.5 MG HCT), DAILY
     Route: 048
     Dates: end: 201211
  2. CO-DIOVAN [Suspect]
     Dosage: UNK UKN, UNK
     Dates: start: 201309
  3. HYDROCHLOROTHIAZIDE [Suspect]
     Dosage: 25 MG, UNK
  4. ENALAPRIL [Suspect]
     Dosage: 2 DF (10 MG ENAL), DAILY
  5. ENALAPRIL [Suspect]
     Dosage: 2 DF (10 MG ENAL), EVERY 8 HOURS
  6. METFORMIN [Concomitant]
     Dosage: UNK UKN, UNK
     Dates: start: 201303

REACTIONS (11)
  - Diabetes mellitus [Unknown]
  - Hypoaesthesia [Not Recovered/Not Resolved]
  - Musculoskeletal pain [Not Recovered/Not Resolved]
  - Blood triglycerides abnormal [Unknown]
  - Alopecia [Not Recovered/Not Resolved]
  - Sleep disorder [Not Recovered/Not Resolved]
  - Drug ineffective [Not Recovered/Not Resolved]
  - Fatigue [Not Recovered/Not Resolved]
  - Arthralgia [Not Recovered/Not Resolved]
  - Back pain [Unknown]
  - Neck pain [Unknown]
